FAERS Safety Report 7776255-2 (Version None)
Quarter: 2011Q3

REPORT INFORMATION
  Report Type: 
  Country: None (occurrence: None)
  Receive Date: 20110926
  Receipt Date: 20110914
  Transmission Date: 20111222
  Serious: Yes (Hospitalization)
  Sender: FDA-Public Use
  Company Number: DE-AMGEN-DEUSP2011048467

PATIENT
  Age: 27 Year
  Sex: Female

DRUGS (4)
  1. PREDNISOLONE [Concomitant]
     Dosage: 2.5 MG, STARTED APPROXIMATELY ONE MONTH PRIOR TO EVENT
     Dates: start: 20110101
  2. ENBREL [Suspect]
     Indication: PRODUCT USED FOR UNKNOWN INDICATION
     Dosage: 50 MG, WEEKLY
     Route: 042
  3. ERGOCALCIFEROL [Concomitant]
     Dosage: UNK
  4. PANTOZOL                           /01263202/ [Concomitant]
     Dosage: UNK

REACTIONS (2)
  - SIALOADENITIS [None]
  - AUTOIMMUNE LYMPHOPROLIFERATIVE SYNDROME [None]
